FAERS Safety Report 9660733 (Version 1)
Quarter: 2013Q4

REPORT INFORMATION
  Report Type: Spontaneous
  Country: FR (occurrence: FR)
  Receive Date: 20131031
  Receipt Date: 20131031
  Transmission Date: 20140711
  Serious: Yes (Hospitalization)
  Sender: FDA-Public Use
  Company Number: FR-PFIZER INC-2013308147

PATIENT
  Age: 56 Year
  Sex: Male

DRUGS (5)
  1. TAZOCILLINE [Suspect]
     Indication: DIABETIC FOOT
     Dosage: UNK
     Route: 042
     Dates: start: 20130820, end: 20130917
  2. CUBICIN [Suspect]
     Indication: DIABETIC FOOT
     Dosage: UNK
     Route: 042
     Dates: start: 20130820, end: 20130917
  3. RIFADINE [Suspect]
     Indication: DIABETIC FOOT
     Dosage: UNK
     Route: 042
     Dates: start: 20130820, end: 20130917
  4. CEFTRIAXONE [Concomitant]
     Indication: DIABETIC FOOT
     Dosage: 2 G, DAILY
     Route: 042
     Dates: start: 20130712
  5. FLAGYL [Concomitant]
     Indication: DIABETIC FOOT
     Dosage: 500 MG, 3X/DAY
     Dates: start: 20130712

REACTIONS (1)
  - Organising pneumonia [Recovered/Resolved]
